APPROVED DRUG PRODUCT: FLUDARABINE PHOSPHATE
Active Ingredient: FLUDARABINE PHOSPHATE
Strength: 50MG/VIAL
Dosage Form/Route: INJECTABLE;INJECTION
Application: A200648 | Product #001
Applicant: RISING PHARMA HOLDINGS INC
Approved: Oct 16, 2012 | RLD: No | RS: No | Type: DISCN